FAERS Safety Report 8275345-8 (Version None)
Quarter: 2012Q2

REPORT INFORMATION
  Report Type: 
  Country: None (occurrence: None)
  Receive Date: 20120411
  Receipt Date: 20120402
  Transmission Date: 20120825
  Serious: Yes (Hospitalization, Other)
  Sender: FDA-Public Use
  Company Number: JP-ROCHE-1036339

PATIENT
  Sex: Female
  Weight: 47 kg

DRUGS (17)
  1. GASTROM [Concomitant]
  2. OLMESARTAN MEDOXOMIL [Concomitant]
  3. DEPAS [Concomitant]
  4. LUCENTIS [Suspect]
     Indication: AGE-RELATED MACULAR DEGENERATION
     Dosage: LEFT EYE
     Route: 050
     Dates: start: 20111206
  5. SITAGLIPTIN PHOSPHATE [Concomitant]
  6. ZETIA [Concomitant]
  7. LUCENTIS [Suspect]
     Dosage: RIGHT EYE
     Route: 050
     Dates: start: 20120113, end: 20120113
  8. INDAPAMIDE [Concomitant]
  9. DOXAZOSIN MESYLATE [Concomitant]
  10. LUCENTIS [Suspect]
     Dosage: LEFT EYE
     Route: 050
     Dates: start: 20120106
  11. PRIMPERAN (JAPAN) [Concomitant]
     Dates: start: 20120124, end: 20120124
  12. LANSOPRAZOLE [Concomitant]
  13. GASMOTIN [Concomitant]
  14. TRICOR [Concomitant]
  15. VISUDYNE [Concomitant]
     Indication: AGE-RELATED MACULAR DEGENERATION
     Route: 042
     Dates: start: 20070901
  16. LEVOFLOXACIN [Concomitant]
     Dates: start: 20111201, end: 20120101
  17. CARVEDILOL [Concomitant]

REACTIONS (2)
  - INAPPROPRIATE SCHEDULE OF DRUG ADMINISTRATION [None]
  - INAPPROPRIATE ANTIDIURETIC HORMONE SECRETION [None]
